FAERS Safety Report 9553702 (Version 2)
Quarter: 2014Q3

REPORT INFORMATION
  Report Type: Spontaneous
  Country: US (occurrence: None)
  Receive Date: 20130815
  Receipt Date: 20140815
  Transmission Date: 20150326
  Serious: Yes (Hospitalization, Other)
  Sender: FDA-Public Use
  Company Number: ADR-2013-01013

PATIENT
  Age: 43 Year
  Sex: Female

DRUGS (3)
  1. ORAL BACLOFEN [Concomitant]
     Active Substance: BACLOFEN
  2. BACLOFEN. [Suspect]
     Active Substance: BACLOFEN
     Indication: MUSCLE SPASTICITY
     Dosage: 790 MCG/DAY
  3. MORPHINE [Suspect]
     Active Substance: MORPHINE
     Indication: MUSCLE SPASTICITY

REACTIONS (3)
  - Overdose [None]
  - Respiratory arrest [None]
  - Convulsion [None]

NARRATIVE: CASE EVENT DATE: 20121101
